FAERS Safety Report 25310411 (Version 3)
Quarter: 2025Q3

REPORT INFORMATION
  Report Type: Report from Study
  Country: EU (occurrence: EU)
  Receive Date: 20250514
  Receipt Date: 20250721
  Transmission Date: 20251021
  Serious: Yes (Hospitalization, Other)
  Sender: AUROBINDO
  Company Number: EU-AUROBINDO-AUR-APL-2025-024928

PATIENT
  Age: 45 Year
  Sex: Female
  Weight: 62.4 kg

DRUGS (65)
  1. PRALATREXATE [Suspect]
     Active Substance: PRALATREXATE
     Indication: Peripheral T-cell lymphoma unspecified stage IV
     Route: 042
     Dates: start: 20250408, end: 20250408
  2. PRALATREXATE [Suspect]
     Active Substance: PRALATREXATE
     Route: 042
     Dates: start: 20250415, end: 20250415
  3. PRALATREXATE [Suspect]
     Active Substance: PRALATREXATE
     Route: 042
     Dates: start: 20250429, end: 20250429
  4. PRALATREXATE [Suspect]
     Active Substance: PRALATREXATE
     Route: 042
     Dates: start: 20250520, end: 20250520
  5. PRALATREXATE [Suspect]
     Active Substance: PRALATREXATE
     Route: 042
     Dates: start: 20250527, end: 20250527
  6. PRALATREXATE [Suspect]
     Active Substance: PRALATREXATE
     Route: 042
     Dates: start: 20250610, end: 20250610
  7. PRALATREXATE [Suspect]
     Active Substance: PRALATREXATE
     Route: 042
     Dates: start: 20250616, end: 20250616
  8. PRALATREXATE [Suspect]
     Active Substance: PRALATREXATE
     Route: 042
     Dates: start: 20250701, end: 20250701
  9. CYCLOPHOSPHAMIDE [Suspect]
     Active Substance: CYCLOPHOSPHAMIDE
     Indication: Peripheral T-cell lymphoma unspecified stage IV
     Route: 042
     Dates: start: 20250408, end: 20250408
  10. CYCLOPHOSPHAMIDE [Suspect]
     Active Substance: CYCLOPHOSPHAMIDE
     Route: 042
     Dates: start: 20250429, end: 20250429
  11. CYCLOPHOSPHAMIDE [Suspect]
     Active Substance: CYCLOPHOSPHAMIDE
     Route: 042
     Dates: start: 20250520, end: 20250520
  12. CYCLOPHOSPHAMIDE [Suspect]
     Active Substance: CYCLOPHOSPHAMIDE
     Route: 042
     Dates: start: 20250610, end: 20250610
  13. CYCLOPHOSPHAMIDE [Suspect]
     Active Substance: CYCLOPHOSPHAMIDE
     Route: 042
     Dates: start: 20250701, end: 20250701
  14. PREDNISONE [Suspect]
     Active Substance: PREDNISONE
     Indication: Peripheral T-cell lymphoma unspecified stage IV
     Dosage: 100 MILLIGRAM, ONCE A DAY
     Route: 048
     Dates: start: 20250408, end: 20250408
  15. PREDNISONE [Suspect]
     Active Substance: PREDNISONE
     Dosage: 100 MILLIGRAM, ONCE A DAY
     Route: 042
     Dates: start: 20250429, end: 20250429
  16. PREDNISONE [Suspect]
     Active Substance: PREDNISONE
     Dosage: 100 MILLIGRAM, ONCE A DAY (CYCLE 3 DAY 1)
     Route: 042
     Dates: start: 20250520
  17. PREDNISONE [Suspect]
     Active Substance: PREDNISONE
     Dosage: 100 MILLIGRAM, ONCE A DAY ( CYCLE 4 DAY 1 )
     Route: 042
     Dates: start: 20250610
  18. PREDNISONE [Suspect]
     Active Substance: PREDNISONE
     Dosage: 100 MILLIGRAM, ONCE A DAY ( CYCLE 4 DAY 1 )
     Route: 042
     Dates: start: 20250701
  19. ONCOVIN [Suspect]
     Active Substance: VINCRISTINE SULFATE
     Indication: Peripheral T-cell lymphoma unspecified stage IV
     Route: 042
     Dates: start: 20250408, end: 20250408
  20. ONCOVIN [Suspect]
     Active Substance: VINCRISTINE SULFATE
     Route: 042
     Dates: start: 20250429, end: 20250429
  21. ONCOVIN [Suspect]
     Active Substance: VINCRISTINE SULFATE
     Route: 042
     Dates: start: 20250520, end: 20250520
  22. ONCOVIN [Suspect]
     Active Substance: VINCRISTINE SULFATE
     Route: 042
     Dates: start: 20250610, end: 20250610
  23. ONCOVIN [Suspect]
     Active Substance: VINCRISTINE SULFATE
     Route: 042
     Dates: start: 20250701, end: 20250701
  24. ETHINYL ESTRADIOL\GESTODENE [Concomitant]
     Active Substance: ETHINYL ESTRADIOL\GESTODENE
     Indication: Contraception
     Dosage: 1 DOSAGE FORM, ONCE A DAY
     Route: 048
     Dates: start: 20200101
  25. ALLOPURINOL [Concomitant]
     Active Substance: ALLOPURINOL
     Indication: Tumour lysis syndrome
     Dosage: 300 MILLIGRAM, ONCE A DAY
     Route: 048
     Dates: start: 20250311
  26. Lignocainum [Concomitant]
     Indication: Anaesthesia
     Dosage: 1 DOSAGE FORM, ONCE A DAY
     Route: 058
     Dates: start: 20250311
  27. FOLIC ACID [Concomitant]
     Active Substance: FOLIC ACID
     Indication: Prophylaxis
     Dosage: 1.2 MILLIGRAM, ONCE A DAY
     Route: 048
     Dates: start: 20250329
  28. BISOPROLOL [Concomitant]
     Active Substance: BISOPROLOL
     Indication: Product used for unknown indication
     Route: 048
     Dates: start: 20250327
  29. VITAMIN B12 [Concomitant]
     Active Substance: CYANOCOBALAMIN
     Indication: Prophylaxis
     Dosage: 1 MILLIGRAM, ONCE A DAY
     Route: 030
     Dates: start: 20250408, end: 20250408
  30. ONDANSETRON [Concomitant]
     Active Substance: ONDANSETRON
     Indication: Prophylaxis
     Dosage: 8 MILLIGRAM, ONCE A DAY
     Route: 042
     Dates: start: 20250408, end: 20250408
  31. ONDANSETRON [Concomitant]
     Active Substance: ONDANSETRON
     Dosage: 8 MILLIGRAM, ONCE A DAY
     Route: 042
     Dates: start: 20250415, end: 20250415
  32. ONDANSETRON [Concomitant]
     Active Substance: ONDANSETRON
     Dosage: 8 MILLIGRAM, ONCE A DAY
     Route: 042
     Dates: start: 20250429, end: 20250429
  33. ONDANSETRON [Concomitant]
     Active Substance: ONDANSETRON
     Dosage: 8 MILLIGRAM, ONCE A DAY
     Route: 042
     Dates: start: 20250520, end: 20250520
  34. ONDANSETRON [Concomitant]
     Active Substance: ONDANSETRON
     Dosage: 8 MILLIGRAM, ONCE A DAY
     Route: 042
     Dates: start: 20250527, end: 20250527
  35. ONDANSETRON [Concomitant]
     Active Substance: ONDANSETRON
     Dosage: 8 MILLIGRAM, ONCE A DAY
     Route: 042
     Dates: start: 20250610, end: 20250610
  36. ONDANSETRON [Concomitant]
     Active Substance: ONDANSETRON
     Dosage: 8 MILLIGRAM, ONCE A DAY
     Route: 042
     Dates: start: 20250616, end: 20250616
  37. ONDANSETRON [Concomitant]
     Active Substance: ONDANSETRON
     Dosage: 8 MILLIGRAM, ONCE A DAY
     Route: 042
     Dates: start: 20250701, end: 20250701
  38. SODIUM CHLORIDE [Concomitant]
     Active Substance: SODIUM CHLORIDE
     Indication: Product used for unknown indication
     Dosage: 500 MILLILITER, ONCE A DAY
     Route: 042
     Dates: start: 20250415, end: 20250415
  39. SODIUM CHLORIDE [Concomitant]
     Active Substance: SODIUM CHLORIDE
     Route: 065
     Dates: start: 202505, end: 202505
  40. FILGRASTIM [Concomitant]
     Active Substance: FILGRASTIM
     Indication: Neutropenia
     Dosage: UNK, ONCE A DAY
     Route: 058
     Dates: start: 20250416, end: 20250416
  41. FILGRASTIM [Concomitant]
     Active Substance: FILGRASTIM
     Dosage: 48 UNK, ONCE A DAY
     Route: 058
     Dates: start: 20250528, end: 20250601
  42. FILGRASTIM [Concomitant]
     Active Substance: FILGRASTIM
     Dosage: 48 UNK, ONCE A DAY
     Route: 058
     Dates: start: 20250617, end: 20250621
  43. ACETAMINOPHEN [Concomitant]
     Active Substance: ACETAMINOPHEN
     Indication: Premedication
     Dosage: 1 GRAM, ONCE A DAY
     Route: 048
     Dates: start: 20250429, end: 20250429
  44. ACETAMINOPHEN [Concomitant]
     Active Substance: ACETAMINOPHEN
     Route: 065
     Dates: start: 202505, end: 202505
  45. ACETAMINOPHEN [Concomitant]
     Active Substance: ACETAMINOPHEN
     Dosage: 1000 MILLIGRAM, ONCE A DAY
     Route: 048
     Dates: start: 20250520, end: 20250520
  46. PREDNISONE [Concomitant]
     Active Substance: PREDNISONE
     Indication: Product used for unknown indication
     Dosage: 10 MILLIGRAM, ONCE A DAY
     Route: 048
     Dates: start: 20250513, end: 20250519
  47. ACYCLOVIR [Concomitant]
     Active Substance: ACYCLOVIR
     Indication: Product used for unknown indication
     Dosage: 800 MILLIGRAM, ONCE A DAY
     Route: 048
     Dates: start: 20250513, end: 20250519
  48. ACYCLOVIR [Concomitant]
     Active Substance: ACYCLOVIR
     Route: 065
     Dates: start: 202505, end: 202505
  49. ESOMEPRAZOLE MAGNESIUM [Concomitant]
     Active Substance: ESOMEPRAZOLE MAGNESIUM
     Indication: Gastritis
     Dosage: 20 MILLIGRAM, ONCE A DAY
     Route: 048
     Dates: start: 20250513
  50. FLUCONAZOLE [Concomitant]
     Active Substance: FLUCONAZOLE
     Indication: Product used for unknown indication
     Dosage: 50 MILLIGRAM, ONCE A DAY
     Route: 048
     Dates: start: 20250513, end: 20250519
  51. XIFAXAN [Concomitant]
     Active Substance: RIFAXIMIN
     Indication: Product used for unknown indication
     Dosage: 200 MILLIGRAM, TWO TIMES A DAY
     Route: 048
     Dates: start: 20250513, end: 20250519
  52. XIFAXAN [Concomitant]
     Active Substance: RIFAXIMIN
     Route: 065
     Dates: start: 202505, end: 202505
  53. CEFTRIAXONE SODIUM [Concomitant]
     Active Substance: CEFTRIAXONE SODIUM
     Indication: Product used for unknown indication
     Route: 065
     Dates: start: 202505, end: 202505
  54. PROBIOTICS NOS [Concomitant]
     Active Substance: PROBIOTICS NOS
     Indication: Product used for unknown indication
     Route: 065
     Dates: start: 202505, end: 202505
  55. FLUCONAZOLE [Concomitant]
     Active Substance: FLUCONAZOLE
     Indication: Product used for unknown indication
     Route: 065
     Dates: start: 202505, end: 202505
  56. FILGRASTIM [Concomitant]
     Active Substance: FILGRASTIM
     Indication: Product used for unknown indication
     Route: 065
     Dates: start: 202505, end: 202505
  57. OMEPRAZOLE [Concomitant]
     Active Substance: OMEPRAZOLE
     Indication: Product used for unknown indication
     Route: 065
     Dates: start: 202505, end: 202505
  58. DROTAVERINE HYDROCHLORIDE [Concomitant]
     Active Substance: DROTAVERINE HYDROCHLORIDE
     Indication: Product used for unknown indication
     Route: 065
     Dates: start: 202505, end: 202505
  59. DEXAMETHASONE [Concomitant]
     Active Substance: DEXAMETHASONE
     Indication: Product used for unknown indication
     Route: 065
     Dates: start: 202505, end: 202505
  60. FUROSEMIDE [Concomitant]
     Active Substance: FUROSEMIDE
     Indication: Product used for unknown indication
     Route: 065
     Dates: start: 202505, end: 202505
  61. LEVOFLOXACIN [Concomitant]
     Active Substance: LEVOFLOXACIN
     Indication: Product used for unknown indication
     Route: 065
     Dates: start: 202505, end: 202505
  62. SERTRALINE HYDROCHLORIDE [Concomitant]
     Active Substance: SERTRALINE HYDROCHLORIDE
     Indication: Product used for unknown indication
     Route: 065
     Dates: start: 202505, end: 202505
  63. ACETAMINOPHEN\TRAMADOL HYDROCHLORIDE [Concomitant]
     Active Substance: ACETAMINOPHEN\TRAMADOL HYDROCHLORIDE
     Indication: Product used for unknown indication
     Route: 065
     Dates: start: 202505, end: 202505
  64. KCL [Concomitant]
     Active Substance: POTASSIUM CHLORIDE
     Indication: Product used for unknown indication
     Route: 065
     Dates: start: 202505, end: 202505
  65. HUMAN RED BLOOD CELL [Concomitant]
     Active Substance: HUMAN RED BLOOD CELL
     Indication: Product used for unknown indication
     Route: 065

REACTIONS (4)
  - Asthenia [Recovered/Resolved]
  - Anaemia [Recovered/Resolved]
  - Wolff-Parkinson-White syndrome [Recovered/Resolved]
  - Hyponatraemia [Recovered/Resolved]

NARRATIVE: CASE EVENT DATE: 20250311
